FAERS Safety Report 7623593-X (Version None)
Quarter: 2011Q3

REPORT INFORMATION
  Report Type: 
  Country: None (occurrence: None)
  Receive Date: 20110720
  Receipt Date: 20110708
  Transmission Date: 20111222
  Serious: Yes (Hospitalization, Other)
  Sender: FDA-Public Use
  Company Number: ES-ELI_LILLY_AND_COMPANY-ES201106005876

PATIENT
  Sex: Female
  Weight: 55 kg

DRUGS (8)
  1. ACETAMINOPHEN [Concomitant]
     Indication: PAIN
     Dosage: 650 MG, PRN
     Route: 048
  2. LEXATIN [Concomitant]
     Indication: ANXIETY
     Dosage: 1.5 MG, BID
  3. COROPRES [Concomitant]
     Indication: ARRHYTHMIA
     Dosage: 0.5 DF, EACH EVENING
     Route: 048
  4. CALCIUM W/COLECALCIFEROL [Concomitant]
     Indication: BLOOD CALCIUM
     Dosage: UNK, QD
     Route: 048
  5. FORTEO [Suspect]
     Indication: OSTEOPOROSIS
     Dosage: 20 UG, QD
     Route: 058
     Dates: end: 20110530
  6. KILOR [Concomitant]
     Indication: ANAEMIA
     Dosage: UNK, QD
     Route: 048
  7. RASILEZ [Concomitant]
     Indication: HYPERTENSION
     Dosage: 3 MG, EACH MORNING
     Route: 048
  8. VESICARE [Concomitant]
     Indication: URINARY INCONTINENCE
     Dosage: 5 MG, QD
     Route: 048

REACTIONS (3)
  - DRUG INEFFECTIVE [None]
  - COLON CANCER RECURRENT [None]
  - URINARY INCONTINENCE [None]
